FAERS Safety Report 17217331 (Version 1)
Quarter: 2019Q4

REPORT INFORMATION
  Report Type: Spontaneous
  Country: RO (occurrence: RO)
  Receive Date: 20191231
  Receipt Date: 20191231
  Transmission Date: 20200122
  Serious: Yes (Other)
  Sender: FDA-Public Use
  Company Number: RO-ROCHE-1910992

PATIENT
  Age: 53 Year
  Sex: Female

DRUGS (3)
  1. TRASTUZUMAB. [Suspect]
     Active Substance: TRASTUZUMAB
     Indication: BREAST CANCER
     Dosage: 6 CYCLES
     Route: 042
     Dates: start: 20130701, end: 201409
  2. VINORELBINA [VINORELBINE] [Concomitant]
     Indication: BREAST CANCER
     Dosage: 6 CYCLES
     Route: 048
     Dates: start: 20130701, end: 201308
  3. TRASTUZUMAB. [Suspect]
     Active Substance: TRASTUZUMAB
     Indication: BREAST CANCER
     Route: 058
     Dates: start: 20141014

REACTIONS (6)
  - Hepatocellular injury [Recovered/Resolved]
  - Hypercholesterolaemia [Unknown]
  - Cardiac hypertrophy [Unknown]
  - Hyperglycaemia [Recovered/Resolved]
  - Hypercholesterolaemia [Not Recovered/Not Resolved]
  - Ejection fraction decreased [Not Recovered/Not Resolved]
